FAERS Safety Report 4848141-9 (Version None)
Quarter: 2005Q4

REPORT INFORMATION
  Report Type: 
  Country: None (occurrence: None)
  Receive Date: 20051206
  Receipt Date: 20051121
  Transmission Date: 20060501
  Serious: Yes (Hospitalization)
  Sender: FDA-Public Use
  Company Number: 2005PV003546

PATIENT
  Age: 40 Year
  Sex: Female
  Weight: 108.8633 kg

DRUGS (8)
  1. SYMLIN [Suspect]
     Indication: DIABETES MELLITUS INSULIN-DEPENDENT
     Dosage: 35 MG; TID; SC, 30 MCG, TID; SC, 15 MCG, TID; SC
     Route: 058
     Dates: start: 20050921, end: 20051006
  2. SYMLIN [Suspect]
     Indication: DIABETES MELLITUS INSULIN-DEPENDENT
     Dosage: 35 MG; TID; SC, 30 MCG, TID; SC, 15 MCG, TID; SC
     Route: 058
     Dates: start: 20051007, end: 20051013
  3. SYMLIN [Suspect]
     Indication: DIABETES MELLITUS INSULIN-DEPENDENT
     Dosage: 35 MG; TID; SC, 30 MCG, TID; SC, 15 MCG, TID; SC
     Route: 058
     Dates: start: 20051014, end: 20051020
  4. LANTUS [Concomitant]
  5. HUMALOG [Concomitant]
  6. METFORMIN [Concomitant]
  7. LABETALOL [Concomitant]
  8. ASPIRIN [Concomitant]

REACTIONS (19)
  - ASTHENIA [None]
  - BLOOD GLUCOSE INCREASED [None]
  - CHEST PAIN [None]
  - CONFUSIONAL STATE [None]
  - CONVULSION [None]
  - DECREASED APPETITE [None]
  - DIZZINESS [None]
  - DYSARTHRIA [None]
  - DYSPNOEA [None]
  - FALL [None]
  - HEART RATE INCREASED [None]
  - HYPERHIDROSIS [None]
  - HYPOGLYCAEMIA [None]
  - LOSS OF CONSCIOUSNESS [None]
  - MUSCLE SPASMS [None]
  - NAUSEA [None]
  - ORAL INTAKE REDUCED [None]
  - SINUS ARRHYTHMIA [None]
  - SYNCOPE [None]
